FAERS Safety Report 8113822-0 (Version None)
Quarter: 2012Q1

REPORT INFORMATION
  Report Type: 
  Country: None (occurrence: None)
  Receive Date: 20120203
  Receipt Date: 20120124
  Transmission Date: 20120608
  Serious: Yes (Death, Life-Threatening, Hospitalization)
  Sender: FDA-Public Use
  Company Number: PHHY2011US92605

PATIENT
  Age: 71 Year
  Sex: Female

DRUGS (3)
  1. FLUDARABINE [Concomitant]
     Dosage: 60.9X10E9
  2. CYTOXAN [Concomitant]
     Dosage: UNK UKN, UNK
  3. PROLEUKIN [Suspect]
     Indication: OESOPHAGEAL CARCINOMA
     Dosage: 1DOSE
     Route: 042
     Dates: start: 20110818, end: 20110818

REACTIONS (19)
  - DEATH [None]
  - AXONAL NEUROPATHY [None]
  - USE OF ACCESSORY RESPIRATORY MUSCLES [None]
  - NEOPLASM PROGRESSION [None]
  - HYPOTENSION [None]
  - BLOOD PRESSURE SYSTOLIC DECREASED [None]
  - RENAL FAILURE [None]
  - UNRESPONSIVE TO STIMULI [None]
  - PARKINSONISM [None]
  - SUBCLAVIAN VEIN THROMBOSIS [None]
  - INFECTION [None]
  - CEREBRAL INFARCTION [None]
  - MENTAL STATUS CHANGES [None]
  - PLEURAL EFFUSION [None]
  - OEDEMA PERIPHERAL [None]
  - DYSPNOEA [None]
  - NEOPLASM MALIGNANT [None]
  - AXILLARY VEIN THROMBOSIS [None]
  - BLOOD CREATININE INCREASED [None]
